FAERS Safety Report 7752590-9 (Version None)
Quarter: 2011Q3

REPORT INFORMATION
  Report Type: 
  Country: None (occurrence: None)
  Receive Date: 20110913
  Receipt Date: 20110830
  Transmission Date: 20111222
  Serious: No
  Sender: FDA-Public Use
  Company Number: THQ2011A05416

PATIENT
  Age: 70 Year
  Sex: Female

DRUGS (1)
  1. PIOGLITAZONE HYDROCHLORIDE AND METFORMIN HYDROCHLORIDE [Suspect]
     Indication: DIABETES MELLITUS
     Dosage: PIOGLITAZONE HYDROCHLORIDE/METFORMIN
     Route: 048
     Dates: start: 20110401

REACTIONS (3)
  - BLOOD GLUCOSE INCREASED [None]
  - KNEE ARTHROPLASTY [None]
  - HAEMOGLOBIN DECREASED [None]
